FAERS Safety Report 6370550-X (Version None)
Quarter: 2009Q3

REPORT INFORMATION
  Report Type: 
  Country: None (occurrence: None)
  Receive Date: 20090923
  Receipt Date: 20090917
  Transmission Date: 20100115
  Serious: Yes (Other)
  Sender: FDA-Public Use
  Company Number: A0808350A

PATIENT
  Age: 26 Year
  Sex: Female

DRUGS (3)
  1. COMPAZINE [Suspect]
     Indication: PSYCHOTIC DISORDER
     Route: 065
  2. WELLBUTRIN [Suspect]
     Indication: DRUG USE FOR UNKNOWN INDICATION
     Route: 065
  3. IRON [Concomitant]

REACTIONS (2)
  - CONVULSION [None]
  - DRUG HYPERSENSITIVITY [None]
